FAERS Safety Report 8764317 (Version 2)
Quarter: 2013Q1

REPORT INFORMATION
  Report Type: Report from Study
  Country: JP (occurrence: JP)
  Receive Date: 20120831
  Receipt Date: 20130201
  Transmission Date: 20140127
  Serious: Yes (Death, Life-Threatening, Hospitalization)
  Sender: FDA-Public Use
  Company Number: JP-BAYER-2012-086931

PATIENT
  Age: 58 Year
  Sex: Male
  Weight: 76 kg

DRUGS (11)
  1. SORAFENIB (RAF KINASE INHIBITOR) [Suspect]
     Indication: HEPATOCELLULAR CARCINOMA
     Dosage: 400 MG, BID
     Route: 048
     Dates: start: 20110718, end: 20110802
  2. MUCOSOLVAN [Concomitant]
     Dosage: DAILY DOSE 45 MG
     Route: 048
     Dates: start: 20110715, end: 20110907
  3. URSO [Concomitant]
     Dosage: DAILY DOSE 300 MG
     Route: 048
     Dates: start: 20110715, end: 20110907
  4. GASTER D [Concomitant]
     Dosage: DAILY DOSE 40 MG
     Route: 048
     Dates: start: 20110715, end: 20110907
  5. DIOVAN [Concomitant]
     Dosage: DAILY DOSE 160 MG
     Route: 048
     Dates: start: 20110715, end: 20110727
  6. TENORMIN [Concomitant]
     Dosage: DAILY DOSE 50 MG
     Route: 048
     Dates: start: 20110715, end: 20110728
  7. FRANDOL [Concomitant]
     Dosage: DAILY DOSE 40 MG
     Route: 062
     Dates: start: 20110725, end: 20110907
  8. AMINOLEBAN [Concomitant]
     Dosage: DAILY DOSE 50 G
     Route: 048
     Dates: start: 20110722, end: 20110907
  9. AMINOLEBAN [Concomitant]
     Dosage: DAILY DOSE 500 ML
     Route: 042
     Dates: start: 20110716, end: 20110805
  10. SOLDEM 3A [Concomitant]
     Dosage: DAILY DOSE 500 ML
     Route: 042
     Dates: start: 20110716, end: 20110729
  11. HEPAFLUSH [Concomitant]
     Dosage: 10 ML DAILY
     Route: 042
     Dates: start: 20110716, end: 20110809

REACTIONS (5)
  - Hepatocellular carcinoma [Fatal]
  - Shock [Fatal]
  - Hepatic haemorrhage [Not Recovered/Not Resolved]
  - Hypoaesthesia [Not Recovered/Not Resolved]
  - Oedema [Not Recovered/Not Resolved]
